FAERS Safety Report 12974325 (Version 1)
Quarter: 2016Q4

REPORT INFORMATION
  Report Type: Spontaneous
  Country: GB (occurrence: GB)
  Receive Date: 20161125
  Receipt Date: 20161125
  Transmission Date: 20170207
  Serious: Yes (Hospitalization, Other)
  Sender: FDA-Public Use
  Company Number: GB-ROCHE-1856909

PATIENT
  Age: 37 Year
  Sex: Female

DRUGS (6)
  1. HERCEPTIN [Suspect]
     Active Substance: TRASTUZUMAB
     Indication: BREAST CANCER
     Dosage: LOADING DOSE
     Route: 042
  2. PERJETA [Suspect]
     Active Substance: PERTUZUMAB
     Dosage: MAINTENANCE DOSE
     Route: 042
  3. DOCETAXEL. [Concomitant]
     Active Substance: DOCETAXEL
     Indication: BREAST CANCER
     Route: 065
  4. HERCEPTIN [Suspect]
     Active Substance: TRASTUZUMAB
     Dosage: MAINTENACE DOSE
     Route: 042
  5. PERJETA [Suspect]
     Active Substance: PERTUZUMAB
     Indication: BREAST CANCER
     Dosage: LOADING DOSE
     Route: 042
  6. ZOLEDRONIC ACID [Concomitant]
     Active Substance: ZOLEDRONIC ACID
     Indication: BREAST CANCER
     Route: 042

REACTIONS (11)
  - Decreased appetite [Unknown]
  - Palpitations [Unknown]
  - Dyspnoea [Unknown]
  - Alopecia [Unknown]
  - Neutropenic sepsis [Unknown]
  - Palmar-plantar erythrodysaesthesia syndrome [Unknown]
  - Fatigue [Recovering/Resolving]
  - Diarrhoea [Unknown]
  - Abdominal pain [Unknown]
  - Mucosal inflammation [Unknown]
  - Bone pain [Unknown]

NARRATIVE: CASE EVENT DATE: 2015
